FAERS Safety Report 4279813-5 (Version None)
Quarter: 2004Q1

REPORT INFORMATION
  Report Type: 
  Country: None (occurrence: None)
  Receive Date: 20040126
  Receipt Date: 20040113
  Transmission Date: 20041129
  Serious: No
  Sender: FDA-Public Use
  Company Number: FR-JNJFOC-20031201955

PATIENT
  Sex: Female

DRUGS (2)
  1. REMICADE [Suspect]
     Indication: CROHN'S DISEASE
     Dosage: INTRAVENOUS
     Route: 042
  2. AZATHIOPRINE [Concomitant]

REACTIONS (6)
  - CROHN'S DISEASE [None]
  - DISEASE RECURRENCE [None]
  - LOCAL REACTION [None]
  - PERINEAL FISTULA [None]
  - PREGNANCY [None]
  - PROCEDURAL COMPLICATION [None]
